FAERS Safety Report 25341512 (Version 1)
Quarter: 2025Q2

REPORT INFORMATION
  Report Type: Other
  Country: US (occurrence: US)
  Receive Date: 20250521
  Receipt Date: 20250521
  Transmission Date: 20250717
  Serious: Yes (Other)
  Sender: SERVIER
  Company Number: US-SERVIER-S25006456

PATIENT

DRUGS (2)
  1. CALASPARGASE PEGOL [Suspect]
     Active Substance: CALASPARGASE PEGOL
     Indication: T-cell type acute leukaemia
     Route: 042
  2. CALASPARGASE PEGOL [Suspect]
     Active Substance: CALASPARGASE PEGOL
     Route: 042

REACTIONS (2)
  - Type I hypersensitivity [Recovered/Resolved]
  - Type III immune complex mediated reaction [Recovered/Resolved]
